FAERS Safety Report 7283818 (Version 5)
Quarter: 2014Q1

REPORT INFORMATION
  Report Type: Spontaneous
  Country: US (occurrence: US)
  Receive Date: 20100218
  Receipt Date: 20140207
  Transmission Date: 20141002
  Serious: Yes (Hospitalization, Other)
  Sender: FDA-Public Use
  Company Number: US-ROCHE-649026

PATIENT
  Age: 39 Year
  Sex: Male
  Weight: 80.7 kg

DRUGS (4)
  1. ACCUTANE [Suspect]
     Indication: ACNE CYSTIC
     Dosage: STRENGTH 20 MG
     Route: 048
     Dates: start: 19990316, end: 19990413
  2. ACCUTANE [Suspect]
     Dosage: STRENGTH 40 MG
     Route: 048
     Dates: start: 19990413, end: 19990727
  3. ACCUTANE [Suspect]
     Dosage: DOSAGE REDUCED
     Route: 048
     Dates: start: 19990727, end: 19991103
  4. DOXYCYCLINE [Concomitant]
     Indication: ACNE CYSTIC
     Route: 065

REACTIONS (13)
  - Colitis ulcerative [Unknown]
  - Colitis [Recovering/Resolving]
  - Inflammatory bowel disease [Unknown]
  - Perirectal abscess [Unknown]
  - Megacolon [Unknown]
  - Depression [Unknown]
  - Suicidal ideation [Unknown]
  - Large intestine perforation [Unknown]
  - Fistula [Unknown]
  - Blood triglycerides increased [Unknown]
  - Blood cholesterol increased [Unknown]
  - Arthralgia [Recovered/Resolved]
  - Lip dry [Unknown]
